FAERS Safety Report 12693765 (Version 1)
Quarter: 2016Q3

REPORT INFORMATION
  Report Type: Spontaneous
  Country: US (occurrence: US)
  Receive Date: 20160829
  Receipt Date: 20160829
  Transmission Date: 20161109
  Serious: Yes (Other)
  Sender: FDA-Public Use
  Company Number: US-PFIZER INC-2016304498

PATIENT
  Age: 9 Year
  Weight: 26.3 kg

DRUGS (1)
  1. BENEFIX [Suspect]
     Active Substance: COAGULATION FACTOR IX RECOMBINANT HUMAN\ISOPROPYL ALCOHOL
     Indication: FACTOR IX DEFICIENCY
     Dosage: 2630 IU, DAILY (2630 UNITS (=/-5%)=100 UNITS/KG=100% DOSE DAILY)

REACTIONS (1)
  - Haemorrhage [Unknown]
